FAERS Safety Report 17869919 (Version 4)
Quarter: 2022Q2

REPORT INFORMATION
  Report Type: Spontaneous
  Country: US (occurrence: US)
  Receive Date: 20200608
  Receipt Date: 20220411
  Transmission Date: 20220721
  Serious: Yes (Other)
  Sender: FDA-Public Use
  Company Number: NVSC2020US157833

PATIENT
  Sex: Female
  Weight: 129 kg

DRUGS (1)
  1. KYMRIAH [Suspect]
     Active Substance: TISAGENLECLEUCEL
     Indication: Diffuse large B-cell lymphoma
     Dosage: UNK, ONCE/SINGLE (INTO BLOODSTREAM VIA VEIN)
     Route: 042
     Dates: start: 20200309

REACTIONS (1)
  - Diffuse large B-cell lymphoma recurrent [Unknown]
